FAERS Safety Report 12590446 (Version 2)
Quarter: 2016Q3

REPORT INFORMATION
  Report Type: Spontaneous
  Country: SK (occurrence: SK)
  Receive Date: 20160725
  Receipt Date: 20160926
  Transmission Date: 20161109
  Serious: Yes (Hospitalization)
  Sender: FDA-Public Use
  Company Number: SK-ABBVIE-16P-260-1683646-00

PATIENT
  Sex: Female

DRUGS (3)
  1. RIBAVIRIN. [Suspect]
     Active Substance: RIBAVIRIN
     Indication: HEPATITIS C
     Route: 048
  2. VIEKIRAX [Suspect]
     Active Substance: OMBITASVIR\PARITAPREVIR\RITONAVIR
     Indication: CHRONIC HEPATITIS C
     Route: 048
     Dates: start: 20160701, end: 20160713
  3. EXVIERA [Suspect]
     Active Substance: DASABUVIR
     Indication: CHRONIC HEPATITIS C
     Route: 048
     Dates: start: 20160701, end: 20160713

REACTIONS (12)
  - Syncope [Unknown]
  - Anuria [Unknown]
  - Dyspnoea [Unknown]
  - Cardiac failure [Recovered/Resolved]
  - Vertigo [Unknown]
  - Dyspepsia [Unknown]
  - Fatigue [Unknown]
  - Mineral deficiency [Unknown]
  - Blood pressure decreased [Unknown]
  - Asthenia [Unknown]
  - Anaemia [Unknown]
  - Pallor [Unknown]

NARRATIVE: CASE EVENT DATE: 20160713
